FAERS Safety Report 7080991-3 (Version None)
Quarter: 2010Q4

REPORT INFORMATION
  Report Type: 
  Country: None (occurrence: None)
  Receive Date: 20101103
  Receipt Date: 20101022
  Transmission Date: 20110411
  Serious: No
  Sender: FDA-Public Use
  Company Number: GB-JNJFOC-20101007409

PATIENT
  Sex: Female

DRUGS (2)
  1. DURAGESIC-100 [Suspect]
     Indication: BACK PAIN
     Route: 062
  2. ORAMORPH SR [Suspect]
     Indication: ILL-DEFINED DISORDER
     Route: 065

REACTIONS (4)
  - HYPERHIDROSIS [None]
  - INADEQUATE ANALGESIA [None]
  - PRODUCT QUALITY ISSUE [None]
  - WRONG TECHNIQUE IN DRUG USAGE PROCESS [None]
